FAERS Safety Report 8607849-X (Version None)
Quarter: 2012Q3

REPORT INFORMATION
  Report Type: 
  Country: None (occurrence: None)
  Receive Date: 20120821
  Receipt Date: 20120817
  Transmission Date: 20120928
  Serious: Yes (Life-Threatening, Hospitalization, Other)
  Sender: FDA-Public Use
  Company Number: PHEH2012US013779

PATIENT
  Sex: Male

DRUGS (8)
  1. PREDNISONE [Concomitant]
     Dosage: 5 MG, DAILY
  2. FUROSEMIDE [Concomitant]
     Dosage: 20 MG, DAILY
  3. METOPROLOL TARTRATE [Concomitant]
     Dosage: 50 MG, BID
  4. RADIATION THERAPY [Concomitant]
     Dosage: UNK
  5. MAGNESIUM OXIDE [Concomitant]
     Dosage: 400 MG, DAILY
  6. AFINITOR [Suspect]
     Indication: METASTATIC RENAL CELL CARCINOMA
     Dosage: 10 MG, DAILY
     Route: 048
     Dates: start: 20120327
  7. GLIPIZIDE [Concomitant]
     Dosage: 5 MG, DAILY
  8. LIPITOR [Concomitant]
     Dosage: 40 MG, DAILY

REACTIONS (17)
  - DYSPNOEA [None]
  - HYPONATRAEMIA [None]
  - PAIN [None]
  - METASTASES TO SPINE [None]
  - RADIATION PNEUMONITIS [None]
  - RENAL FAILURE [None]
  - CONSTIPATION [None]
  - DECREASED APPETITE [None]
  - INAPPROPRIATE ANTIDIURETIC HORMONE SECRETION [None]
  - DEHYDRATION [None]
  - KIDNEY TRANSPLANT REJECTION [None]
  - METABOLIC ACIDOSIS [None]
  - HYPOXIA [None]
  - HYPERGLYCAEMIA [None]
  - ANAEMIA [None]
  - DIARRHOEA [None]
  - LUNG DISORDER [None]
